FAERS Safety Report 26039921 (Version 4)
Quarter: 2025Q4

REPORT INFORMATION
  Report Type: Spontaneous
  Country: US (occurrence: US)
  Receive Date: 20251113
  Receipt Date: 20251230
  Transmission Date: 20260117
  Serious: Yes (Hospitalization, Other)
  Sender: ACCORD
  Company Number: US-Accord-511211

PATIENT
  Age: 67 Year
  Sex: Male
  Weight: 72 kg

DRUGS (13)
  1. FLUOROURACIL [Suspect]
     Active Substance: FLUOROURACIL
     Indication: Adenocarcinoma of colon
     Dosage: 4585 MG/M2, Q2WEEKS, IV DRIP (CYCLE DAY 1 AND 15)
     Route: 042
     Dates: start: 20250916, end: 20250917
  2. IRINOTECAN [Suspect]
     Active Substance: IRINOTECAN
     Indication: Adenocarcinoma of colon
     Dosage: 340MG/M2, Q2WEEKS, IV DRIP (CYCLE DAY 1 AND 15)
     Route: 042
     Dates: start: 20250916, end: 20250916
  3. LEUCOVORIN [Suspect]
     Active Substance: LEUCOVORIN\LEUCOVORIN CALCIUM
     Indication: Adenocarcinoma of colon
     Dosage: 760MG/M2, Q2WEEKS, IV DRIP (CYCLE DAY 1 TO 15)
     Route: 042
     Dates: start: 20250916, end: 20250916
  4. VITAMIN E [Concomitant]
     Active Substance: .ALPHA.-TOCOPHEROL
     Dates: start: 20250527
  5. VITAMIN B12 [Concomitant]
     Active Substance: CYANOCOBALAMIN
     Dates: start: 20250527
  6. CALCIUM, MAGNESIUM + ZINC WITH VITAMIN D3 [Concomitant]
     Dates: start: 20250825
  7. VITAMIN D3 [Concomitant]
     Active Substance: CHOLECALCIFEROL
     Dates: start: 20250527
  8. IRINOTECAN [Suspect]
     Active Substance: IRINOTECAN
     Indication: Adenocarcinoma of colon
     Dosage: 310MG/M2, Q2HR, IV DRIP (CYCLE DAY 1 AND 15)
     Route: 042
     Dates: start: 20250930, end: 20250930
  9. FLUOROURACIL [Suspect]
     Active Substance: FLUOROURACIL
     Indication: Adenocarcinoma of colon
     Dosage: 4585 MG/M2, Q2WEEKS, IV DRIP (CYCLE DAY 1 AND 15)
     Route: 042
     Dates: start: 20250930, end: 20251001
  10. LEUCOVORIN [Suspect]
     Active Substance: LEUCOVORIN\LEUCOVORIN CALCIUM
     Indication: Adenocarcinoma of colon
     Dosage: 760MG/M2, Q2WEEKS, IV DRIP (CYCLE DAY 1 TO 15)
     Route: 042
     Dates: start: 20250930, end: 20250930
  11. FLUOROURACIL [Suspect]
     Active Substance: FLUOROURACIL
     Indication: Adenocarcinoma of colon
     Dosage: 2400 MG/M2, Q2WEEKS, IV DRIP (CYCLE DAY 1 AND 15)
     Route: 042
     Dates: start: 20251014, end: 20251015
  12. IRINOTECAN [Suspect]
     Active Substance: IRINOTECAN
     Indication: Adenocarcinoma of colon
     Dosage: 162 MG/M2, Q2WEEKS, IV DRIP (CYCLE DAY 1 AND 15)
     Route: 042
     Dates: start: 20251014, end: 20251014
  13. LEUCOVORIN [Suspect]
     Active Substance: LEUCOVORIN\LEUCOVORIN CALCIUM
     Indication: Adenocarcinoma of colon
     Dosage: 720MG/M2, Q2WEEKS, IV DRIP (CYCLE DAY 1 AND 15)
     Route: 042
     Dates: start: 20251014, end: 20251014

REACTIONS (2)
  - Hypotension [Recovered/Resolved]
  - Leukopenia [Unknown]

NARRATIVE: CASE EVENT DATE: 20251001
